FAERS Safety Report 20714272 (Version 1)
Quarter: 2022Q2

REPORT INFORMATION
  Report Type: Spontaneous
  Country: US (occurrence: US)
  Receive Date: 20220415
  Receipt Date: 20220415
  Transmission Date: 20220720
  Serious: Yes (Death, Other)
  Sender: FDA-Public Use
  Company Number: US-SA-SAC20220413001697

PATIENT
  Age: 47 Year

DRUGS (1)
  1. ZANTAC [Suspect]
     Active Substance: RANITIDINE HYDROCHLORIDE
     Indication: Gastrooesophageal reflux disease
     Dosage: 150 MG, QD
     Dates: start: 200501, end: 200912

REACTIONS (2)
  - Lung carcinoma cell type unspecified stage III [Fatal]
  - Non-Hodgkin^s lymphoma stage III [Fatal]

NARRATIVE: CASE EVENT DATE: 20200901
